FAERS Safety Report 9177518 (Version 2)
Quarter: 2013Q2

REPORT INFORMATION
  Report Type: Spontaneous
  Country: US (occurrence: US)
  Receive Date: 20130321
  Receipt Date: 20130606
  Transmission Date: 20140414
  Serious: Yes (Death, Other)
  Sender: FDA-Public Use
  Company Number: US-PFIZER INC-2013092878

PATIENT
  Age: 33 Year
  Sex: Male

DRUGS (2)
  1. CHANTIX [Suspect]
     Dosage: CHANTIX PACK, UNK
     Dates: start: 20070108, end: 20110101
  2. CHANTIX [Suspect]
     Dosage: 1 MG, UNK
     Dates: start: 20070727

REACTIONS (1)
  - Completed suicide [Fatal]
